FAERS Safety Report 17570958 (Version 2)
Quarter: 2020Q2

REPORT INFORMATION
  Report Type: Spontaneous
  Country: US (occurrence: US)
  Receive Date: 20200323
  Receipt Date: 20200422
  Transmission Date: 20200713
  Serious: No
  Sender: FDA-Public Use
  Company Number: US-PFIZER INC-2020119290

PATIENT
  Sex: Female

DRUGS (1)
  1. PREMPRO [Suspect]
     Active Substance: ESTROGENS, CONJUGATED\MEDROXYPROGESTERONE ACETATE
     Dosage: 0.3 MG ESTROGENS CONJUGATED/5 MG MEDROXYPROGESTERONE ACETATE, ONCE DAILY

REACTIONS (2)
  - Malaise [Unknown]
  - Wrong strength [Unknown]
